FAERS Safety Report 19543645 (Version 4)
Quarter: 2022Q1

REPORT INFORMATION
  Report Type: Spontaneous
  Country: SK (occurrence: SK)
  Receive Date: 20210713
  Receipt Date: 20220322
  Transmission Date: 20220424
  Serious: Yes (Death, Life-Threatening, Hospitalization, Other)
  Sender: FDA-Public Use
  Company Number: SK-MYLANLABS-2021M1042123

PATIENT
  Age: 33 Year
  Sex: Female

DRUGS (27)
  1. VANCOMYCIN [Suspect]
     Active Substance: VANCOMYCIN
     Indication: COVID-19
     Dosage: UNK
     Route: 065
  2. MESALAMINE [Suspect]
     Active Substance: MESALAMINE
     Indication: Colitis ulcerative
     Dosage: UNK
     Route: 065
  3. DOPAMINE [Suspect]
     Active Substance: DOPAMINE HYDROCHLORIDE
     Indication: Vasopressive therapy
     Dosage: UNK
     Route: 065
  4. AZATHIOPRINE [Suspect]
     Active Substance: AZATHIOPRINE
     Indication: Colitis ulcerative
     Dosage: UNK
     Route: 065
  5. LINEZOLID [Suspect]
     Active Substance: LINEZOLID
     Indication: Antibiotic therapy
     Dosage: UNK
     Route: 065
  6. LINEZOLID [Suspect]
     Active Substance: LINEZOLID
     Indication: COVID-19
  7. LINEZOLID [Suspect]
     Active Substance: LINEZOLID
     Indication: Infection
  8. CEFUROXIME [Suspect]
     Active Substance: CEFUROXIME
     Indication: COVID-19
     Route: 065
  9. CEFUROXIME [Suspect]
     Active Substance: CEFUROXIME
     Indication: Antibiotic therapy
     Dosage: UNK
     Route: 065
  10. DEXAMETHASONE [Suspect]
     Active Substance: DEXAMETHASONE
     Indication: COVID-19
     Dosage: 4 MILLIGRAM
     Route: 065
  11. AZITHROMYCIN [Suspect]
     Active Substance: AZITHROMYCIN
     Indication: COVID-19
     Dosage: UNK
     Route: 065
  12. MOXIFLOXACIN [Suspect]
     Active Substance: MOXIFLOXACIN
     Indication: COVID-19
     Dosage: UNK
     Route: 065
  13. MEROPENEM [Suspect]
     Active Substance: MEROPENEM
     Indication: COVID-19
     Dosage: UNK
     Route: 065
  14. NOREPINEPHRINE [Suspect]
     Active Substance: NOREPINEPHRINE
     Indication: Vasopressive therapy
     Dosage: UNK
     Route: 065
  15. COLISTIMETHATE SODIUM [Suspect]
     Active Substance: COLISTIMETHATE SODIUM
     Indication: Acinetobacter infection
     Dosage: UNK
     Route: 065
  16. FLUCONAZOLE [Suspect]
     Active Substance: FLUCONAZOLE
     Indication: Candida infection
     Dosage: UNK
     Route: 065
  17. FLUCONAZOLE [Suspect]
     Active Substance: FLUCONAZOLE
     Indication: Antifungal treatment
     Dosage: 200 MILLIGRAM, QD
     Route: 065
  18. ESTRADIOL [Suspect]
     Active Substance: ESTRADIOL
     Indication: Hormone therapy
     Dosage: 6 MILLIGRAM, QD
     Route: 048
  19. ESTRADIOL [Suspect]
     Active Substance: ESTRADIOL
     Dosage: 3 MILLIGRAM
     Route: 048
  20. FLUCONAZOLE [Suspect]
     Active Substance: FLUCONAZOLE
     Indication: Antifungal treatment
     Dosage: 400 MILLIGRAM, QD
     Route: 051
  21. ESTRADIOL [Concomitant]
     Active Substance: ESTRADIOL
     Indication: Hormone therapy
     Dosage: 3 MILLIGRAM
     Route: 048
  22. ESTRADIOL [Concomitant]
     Active Substance: ESTRADIOL
     Dosage: 6 MILLIGRAM, QD
     Route: 048
  23. PROGESTERONE [Concomitant]
     Active Substance: PROGESTERONE
     Indication: Hormone therapy
     Dosage: 400 MILLIGRAM TWICE
     Route: 067
  24. PROGESTERONE [Concomitant]
     Active Substance: PROGESTERONE
     Dosage: 2 DOSAGE FORM
     Route: 067
  25. MOXIFLOXACIN [Concomitant]
     Active Substance: MOXIFLOXACIN
     Indication: Antibiotic therapy
     Dosage: UNK
  26. MEROPENEM [Concomitant]
     Active Substance: MEROPENEM
     Indication: Antibiotic therapy
     Dosage: UNK
  27. OXYGEN [Concomitant]
     Active Substance: OXYGEN
     Dosage: UNK

REACTIONS (31)
  - Pneumonia [Fatal]
  - Septic shock [Fatal]
  - Respiratory failure [Fatal]
  - Myelosuppression [Fatal]
  - Coronavirus infection [Fatal]
  - Immunosuppression [Fatal]
  - COVID-19 [Fatal]
  - Multiple organ dysfunction syndrome [Fatal]
  - Hepatic failure [Fatal]
  - Drug-induced liver injury [Fatal]
  - Hepatotoxicity [Fatal]
  - Pancytopenia [Not Recovered/Not Resolved]
  - Dysbiosis [Unknown]
  - Hepatosplenomegaly [Unknown]
  - Hyperbilirubinaemia [Not Recovered/Not Resolved]
  - Ascites [Unknown]
  - Acinetobacter infection [Not Recovered/Not Resolved]
  - Pericardial effusion [Unknown]
  - Anaemia [Not Recovered/Not Resolved]
  - Candida infection [Not Recovered/Not Resolved]
  - Sinus tachycardia [Not Recovered/Not Resolved]
  - Hydrothorax [Unknown]
  - Pleural effusion [Unknown]
  - Atrioventricular block second degree [Not Recovered/Not Resolved]
  - Thrombocytopenia [Not Recovered/Not Resolved]
  - Mediastinal effusion [Unknown]
  - Hypotension [Not Recovered/Not Resolved]
  - Gastrointestinal oedema [Unknown]
  - Lymphopenia [Not Recovered/Not Resolved]
  - Drug ineffective for unapproved indication [Unknown]
  - Off label use [Unknown]
